FAERS Safety Report 25754341 (Version 1)
Quarter: 2025Q3

REPORT INFORMATION
  Report Type: Spontaneous
  Country: US (occurrence: US)
  Receive Date: 20250903
  Receipt Date: 20250903
  Transmission Date: 20251021
  Serious: No
  Sender: STRIDES
  Company Number: US-STRIDES ARCOLAB LIMITED-2024SP016655

PATIENT
  Age: 47 Year
  Sex: Female

DRUGS (3)
  1. ACARBOSE [Suspect]
     Active Substance: ACARBOSE
     Indication: Hyperinsulinaemic hypoglycaemia
     Route: 065
  2. DIAZOXIDE [Suspect]
     Active Substance: DIAZOXIDE
     Indication: Hyperinsulinaemic hypoglycaemia
     Route: 065
  3. GLUCAGON [Concomitant]
     Active Substance: GLUCAGON
     Indication: Hyperinsulinaemic hypoglycaemia
     Route: 065

REACTIONS (2)
  - Drug intolerance [Unknown]
  - Off label use [Unknown]
